FAERS Safety Report 17495011 (Version 2)
Quarter: 2021Q1

REPORT INFORMATION
  Report Type: Spontaneous
  Country: US (occurrence: US)
  Receive Date: 20200303
  Receipt Date: 20210303
  Transmission Date: 20210419
  Serious: No
  Sender: FDA-Public Use
  Company Number: US-AMNEAL PHARMACEUTICALS-2019-IPXL-01686

PATIENT
  Age: 69 Year
  Sex: Male
  Weight: 70 kg

DRUGS (2)
  1. ENTACAPONE. [Concomitant]
     Active Substance: ENTACAPONE
     Indication: PRODUCT USED FOR UNKNOWN INDICATION
     Dosage: 1 TABLETS, 3 /DAY
     Route: 065
  2. RYTARY [Suspect]
     Active Substance: CARBIDOPA\LEVODOPA
     Indication: PARKINSON^S DISEASE
     Dosage: 3 CAPSULES, 3 /DAY
     Route: 048
     Dates: start: 20190729, end: 201908

REACTIONS (3)
  - Condition aggravated [Not Recovered/Not Resolved]
  - Drug ineffective [Not Recovered/Not Resolved]
  - Dyskinesia [Unknown]

NARRATIVE: CASE EVENT DATE: 20190729
